FAERS Safety Report 9787713 (Version 1)
Quarter: 2013Q4

REPORT INFORMATION
  Report Type: Spontaneous
  Country: CH (occurrence: CH)
  Receive Date: 20131230
  Receipt Date: 20131230
  Transmission Date: 20140711
  Serious: Yes (Hospitalization)
  Sender: FDA-Public Use
  Company Number: CH-JNJFOC-20131215507

PATIENT
  Age: 74 Year
  Sex: Male
  Weight: 67 kg

DRUGS (7)
  1. XARELTO [Suspect]
     Indication: CEREBROVASCULAR ACCIDENT PROPHYLAXIS
     Route: 048
     Dates: start: 20130124, end: 20131112
  2. XARELTO [Suspect]
     Indication: ATRIAL FIBRILLATION
     Route: 048
     Dates: start: 20130124, end: 20131112
  3. XARELTO [Suspect]
     Indication: ATRIAL FLUTTER
     Route: 048
     Dates: start: 20130124, end: 20131112
  4. ATORVASTATIN [Concomitant]
     Route: 048
  5. CONCOR [Concomitant]
     Route: 048
  6. TRIATEC [Concomitant]
     Route: 048
  7. TOREM [Concomitant]
     Route: 048

REACTIONS (7)
  - Chronic gastrointestinal bleeding [Unknown]
  - Melaena [Unknown]
  - Haemorrhagic anaemia [Unknown]
  - Cardiac failure [Recovered/Resolved]
  - Asthenia [Recovered/Resolved]
  - Dyspnoea [Recovered/Resolved]
  - Oedema [Recovered/Resolved]
